FAERS Safety Report 18493633 (Version 10)
Quarter: 2025Q2

REPORT INFORMATION
  Report Type: Report from Study
  Country: CA (occurrence: CA)
  Receive Date: 20201111
  Receipt Date: 20250624
  Transmission Date: 20250717
  Serious: Yes (Other)
  Sender: TAKEDA
  Company Number: CA-TAKEDA-2018TUS032985

PATIENT
  Sex: Female

DRUGS (16)
  1. VEDOLIZUMAB [Suspect]
     Active Substance: VEDOLIZUMAB
     Indication: Crohn^s disease
  2. VEDOLIZUMAB [Suspect]
     Active Substance: VEDOLIZUMAB
  3. VEDOLIZUMAB [Suspect]
     Active Substance: VEDOLIZUMAB
  4. VEDOLIZUMAB [Suspect]
     Active Substance: VEDOLIZUMAB
  5. VEDOLIZUMAB [Suspect]
     Active Substance: VEDOLIZUMAB
  6. VEDOLIZUMAB [Suspect]
     Active Substance: VEDOLIZUMAB
     Dosage: 300 MILLIGRAM, Q4WEEKS
     Dates: start: 20201222
  7. VEDOLIZUMAB [Suspect]
     Active Substance: VEDOLIZUMAB
     Dosage: 300 MILLIGRAM, Q4WEEKS
  8. VEDOLIZUMAB [Suspect]
     Active Substance: VEDOLIZUMAB
     Dosage: 300 MILLIGRAM, Q4WEEKS
  9. VEDOLIZUMAB [Suspect]
     Active Substance: VEDOLIZUMAB
     Dosage: 300 MILLIGRAM, Q4WEEKS
  10. VEDOLIZUMAB [Suspect]
     Active Substance: VEDOLIZUMAB
     Dosage: 300 MILLIGRAM, Q4WEEKS
  11. VEDOLIZUMAB [Suspect]
     Active Substance: VEDOLIZUMAB
     Dosage: 300 MILLIGRAM, Q4WEEKS
  12. VEDOLIZUMAB [Suspect]
     Active Substance: VEDOLIZUMAB
     Dosage: 300 MILLIGRAM, Q4WEEKS
     Dates: end: 20250604
  13. PLAQUENIL [Concomitant]
     Active Substance: HYDROXYCHLOROQUINE SULFATE
     Indication: Arthritis
     Dosage: 100 MILLIGRAM, BID
  14. JANUMET XR [Concomitant]
     Active Substance: METFORMIN HYDROCHLORIDE\SITAGLIPTIN PHOSPHATE
  15. Diamicron [Concomitant]
     Indication: Diabetes mellitus
     Dosage: 60 MILLIGRAM, BID
  16. INVOKANA [Concomitant]
     Active Substance: CANAGLIFLOZIN
     Indication: Diabetes mellitus
     Dosage: 300 MILLIGRAM, QD
     Dates: start: 20160715

REACTIONS (14)
  - Crohn^s disease [Recovering/Resolving]
  - Arthritis [Recovering/Resolving]
  - Pneumonia [Recovered/Resolved]
  - Diarrhoea [Recovering/Resolving]
  - Proctalgia [Unknown]
  - Off label use [Unknown]
  - Mucous stools [Unknown]
  - Fistula [Unknown]
  - Drug ineffective [Unknown]
  - Malaise [Unknown]
  - Abdominal pain [Unknown]
  - Vomiting [Unknown]
  - Sinusitis [Unknown]
  - Nausea [Unknown]

NARRATIVE: CASE EVENT DATE: 20180101
